FAERS Safety Report 23006221 (Version 4)
Quarter: 2025Q3

REPORT INFORMATION
  Report Type: Spontaneous
  Country: EU (occurrence: EU)
  Receive Date: 20230929
  Receipt Date: 20250919
  Transmission Date: 20251020
  Serious: Yes (Hospitalization, Disabling, Other)
  Sender: AUROBINDO
  Company Number: EU-AUROBINDO-AUR-APL-2023-060611

PATIENT
  Age: 35 Year
  Sex: Female
  Weight: 52 kg

DRUGS (6)
  1. PREDNISOLONE [Suspect]
     Active Substance: PREDNISOLONE
     Indication: Headache
     Route: 048
     Dates: start: 20061107, end: 200611
  2. PREDNISOLONE [Suspect]
     Active Substance: PREDNISOLONE
     Indication: Musculoskeletal stiffness
  3. PROPOXYPHENE HYDROCHLORIDE [Suspect]
     Active Substance: PROPOXYPHENE HYDROCHLORIDE
     Indication: Headache
     Route: 065
     Dates: start: 20061107, end: 200611
  4. PROPOXYPHENE HYDROCHLORIDE [Suspect]
     Active Substance: PROPOXYPHENE HYDROCHLORIDE
     Indication: Musculoskeletal stiffness
  5. PENICILLIN [Suspect]
     Active Substance: PENICILLIN
     Indication: Headache
     Route: 065
     Dates: start: 20061107, end: 200611
  6. PENICILLIN [Suspect]
     Active Substance: PENICILLIN
     Indication: Musculoskeletal stiffness

REACTIONS (7)
  - Encephalitis herpes [Recovered/Resolved with Sequelae]
  - Headache [Recovered/Resolved with Sequelae]
  - Musculoskeletal stiffness [Recovered/Resolved with Sequelae]
  - Coma [Recovered/Resolved with Sequelae]
  - Cerebral haemorrhage [Recovered/Resolved with Sequelae]
  - Vomiting [Recovered/Resolved with Sequelae]
  - Contraindicated product administered [Unknown]

NARRATIVE: CASE EVENT DATE: 20061101
